FAERS Safety Report 5007168-7 (Version None)
Quarter: 2006Q1

REPORT INFORMATION
  Report Type: 
  Country: None (occurrence: None)
  Receive Date: 20060327
  Receipt Date: 20051216
  Transmission Date: 20060701
  Serious: Yes (Other)
  Sender: FDA-Public Use
  Company Number: 220454

PATIENT
  Age: 47 Year
  Sex: Female

DRUGS (6)
  1. AVASTIN [Suspect]
     Indication: NON-SMALL CELL LUNG CANCER
     Dosage: 950 MG, Q2W, INTRAVENOUS
     Route: 042
     Dates: start: 20050401
  2. TARCEVA [Suspect]
     Indication: NON-SMALL CELL LUNG CANCER
     Dosage: 150 MG, QD, ORAL
     Route: 048
     Dates: start: 20041201
  3. PROTONIX [Concomitant]
  4. CELEBREX [Concomitant]
  5. AMBIEN [Concomitant]
  6. ZOMETA [Concomitant]

REACTIONS (1)
  - DYSPEPSIA [None]
